FAERS Safety Report 20685880 (Version 1)
Quarter: 2022Q2

REPORT INFORMATION
  Report Type: Spontaneous
  Country: US (occurrence: US)
  Receive Date: 20220407
  Receipt Date: 20220407
  Transmission Date: 20220720
  Serious: No
  Sender: FDA-Public Use
  Company Number: US-PFIZER INC-2020114907

PATIENT
  Age: 69 Year
  Sex: Female

DRUGS (4)
  1. CHANTIX [Suspect]
     Active Substance: VARENICLINE TARTRATE
     Dosage: 1/2 TAB PO AT NIGHT X 3 DAYS , THEN 1/2 TAB BID (TWICE A DAY) X 3 DAYS, THEN 1 TAB 2 TIMES DAILY
     Route: 048
  2. CHANTIX [Suspect]
     Active Substance: VARENICLINE TARTRATE
     Dosage: 1/2 TAB PO AT NIGHT X 3 DAYS , THEN 1/2 TAB BID (TWICE A DAY) X 3 DAYS, THEN 1 TAB 2 TIMES DAILY
     Route: 048
  3. CHANTIX [Suspect]
     Active Substance: VARENICLINE TARTRATE
     Dosage: 1/2 TAB PO AT NIGHT X 3 DAYS , THEN 1/2 TAB BID (TWICE A DAY) X 3 DAYS, THEN 1 TAB 2 TIMES DAILY
     Route: 048
  4. CHANTIX [Suspect]
     Active Substance: VARENICLINE TARTRATE
     Dosage: UNK

REACTIONS (2)
  - Product prescribing error [Unknown]
  - Therapeutic product effect incomplete [Unknown]
